FAERS Safety Report 8587991-2 (Version None)
Quarter: 2012Q3

REPORT INFORMATION
  Report Type: 
  Country: None (occurrence: None)
  Receive Date: 20120813
  Receipt Date: 20120803
  Transmission Date: 20120928
  Serious: Yes (Hospitalization)
  Sender: FDA-Public Use
  Company Number: IT-BRISTOL-MYERS SQUIBB COMPANY-16835811

PATIENT
  Age: 87 Year
  Sex: Male

DRUGS (5)
  1. LASIX [Concomitant]
     Dosage: (2DOSES)TABLET
     Route: 048
  2. BISOPROLOL FUMARATE [Concomitant]
     Route: 048
  3. COUMADIN [Suspect]
     Indication: CEREBRAL ISCHAEMIA
     Route: 048
     Dates: start: 20060101, end: 20120721
  4. RAMIPRIL [Concomitant]
     Indication: HYPERTENSION
     Route: 048
  5. NITRODERM PATCH [Concomitant]

REACTIONS (2)
  - ANAEMIA [None]
  - MELAENA [None]
